FAERS Safety Report 24670387 (Version 1)
Quarter: 2024Q4

REPORT INFORMATION
  Report Type: Spontaneous
  Country: US (occurrence: None)
  Receive Date: 20241126
  Receipt Date: 20241126
  Transmission Date: 20250115
  Serious: Yes (Life-Threatening, Disabling)
  Sender: Public
  Company Number: None

PATIENT
  Age: 55 Year
  Sex: Female
  Weight: 90 kg

DRUGS (4)
  1. TIZANIDINE HYDROCHLORIDE [Suspect]
     Active Substance: TIZANIDINE HYDROCHLORIDE
     Indication: Muscle spasms
     Dosage: OTHER QUANTITY : 30 TABLET(S);?FREQUENCY : EVERY 8 HOURS;?
     Route: 048
     Dates: start: 20241118, end: 20241118
  2. TIZANIDINE HYDROCHLORIDE [Suspect]
     Active Substance: TIZANIDINE HYDROCHLORIDE
     Indication: Pain
  3. PEPCID [Concomitant]
     Active Substance: FAMOTIDINE
  4. VITAMIN D [Concomitant]
     Active Substance: VITAMIN D NOS

REACTIONS (21)
  - Sedation [None]
  - Chills [None]
  - Pyrexia [None]
  - Vomiting [None]
  - Headache [None]
  - Rash [None]
  - Vertigo [None]
  - Balance disorder [None]
  - Coordination abnormal [None]
  - Dizziness [None]
  - Fatigue [None]
  - Loss of consciousness [None]
  - Blood pressure decreased [None]
  - Gait inability [None]
  - Incoherent [None]
  - Speech disorder [None]
  - Anxiety [None]
  - Restlessness [None]
  - Vision blurred [None]
  - Product complaint [None]
  - Dyspnoea [None]

NARRATIVE: CASE EVENT DATE: 20241118
